FAERS Safety Report 15651370 (Version 2)
Quarter: 2019Q1

REPORT INFORMATION
  Report Type: Spontaneous
  Country: US (occurrence: US)
  Receive Date: 20181123
  Receipt Date: 20190206
  Transmission Date: 20190417
  Serious: Yes (Other)
  Sender: FDA-Public Use
  Company Number: US-SA-2018SA317768

PATIENT
  Age: 49 Year
  Sex: Female
  Weight: 70 kg

DRUGS (8)
  1. TAXOTERE [Suspect]
     Active Substance: DOCETAXEL
     Dosage: UNK UNK, Q3W
     Route: 042
     Dates: start: 20110111, end: 20110111
  2. FLONASE [Concomitant]
     Active Substance: FLUTICASONE PROPIONATE
     Dosage: UNK UNK, UNK
     Route: 065
  3. ROGAINE [Concomitant]
     Active Substance: MINOXIDIL
     Dosage: UNK UNK, UNK
     Route: 065
     Dates: start: 20120101
  4. HERCEPTIN [Concomitant]
     Active Substance: TRASTUZUMAB
     Dosage: 276 MG
     Route: 042
  5. CLARITINE [Concomitant]
     Active Substance: LORATADINE
     Dosage: UNK UNK, UNK
     Route: 065
  6. PARAPLATIN [Concomitant]
     Active Substance: CARBOPLATIN
     Dosage: 555 MG, UNK
     Route: 042
  7. NEXIUM [Concomitant]
     Active Substance: ESOMEPRAZOLE MAGNESIUM
     Dosage: UNK UNK, UNK
     Route: 065
  8. TAXOTERE [Suspect]
     Active Substance: DOCETAXEL
     Indication: BREAST CANCER FEMALE
     Dosage: UNK UNK, Q3W
     Route: 042
     Dates: start: 20100922, end: 20100922

REACTIONS (2)
  - Psychological trauma [Unknown]
  - Alopecia [Recovering/Resolving]

NARRATIVE: CASE EVENT DATE: 20110711
